FAERS Safety Report 6831768-2 (Version None)
Quarter: 2010Q2

REPORT INFORMATION
  Report Type: 
  Country: None (occurrence: None)
  Receive Date: 20100520
  Receipt Date: 20090408
  Transmission Date: 20101027
  Serious: Yes (Other)
  Sender: FDA-Public Use
  Company Number: 2009195990

PATIENT
  Age: 67 Year
  Sex: Female

DRUGS (8)
  1. PROVERA [Suspect]
     Indication: HORMONE REPLACEMENT THERAPY
     Dates: start: 19941019, end: 20001128
  2. PROVERA [Suspect]
     Indication: MENOPAUSE
     Dates: start: 19941019, end: 20001128
  3. PREMARIN [Suspect]
     Indication: HORMONE REPLACEMENT THERAPY
     Dates: start: 19941019, end: 20001128
  4. PREMARIN [Suspect]
     Indication: MENOPAUSE
     Dates: start: 19941019, end: 20001128
  5. PREMPRO [Suspect]
     Indication: HORMONE REPLACEMENT THERAPY
     Dates: end: 20011101
  6. PREMPRO [Suspect]
     Indication: MENOPAUSE
     Dates: end: 20011101
  7. NORVASC [Concomitant]
  8. TRICOR [Concomitant]

REACTIONS (1)
  - BREAST CANCER FEMALE [None]
